FAERS Safety Report 6125189-8 (Version None)
Quarter: 2009Q1

REPORT INFORMATION
  Report Type: 
  Country: None (occurrence: None)
  Receive Date: 20090317
  Receipt Date: 20090307
  Transmission Date: 20090719
  Serious: Yes (Other)
  Sender: FDA-Public Use
  Company Number: CHPA2008US03294

PATIENT
  Sex: Female

DRUGS (5)
  1. NICOTINE [Suspect]
     Indication: SMOKING CESSATION THERAPY
     Dosage: 21MG, QD,
     Dates: start: 20071225
  2. RADIATION THERAPY (NO INGREDIENTS/SUBCUTANCES) [Concomitant]
  3. OMEPRAZOLE [Concomitant]
  4. NAPROXEN [Concomitant]
  5. DRUG THERAPY NOS (DRUG THERAPY NOS) [Concomitant]

REACTIONS (9)
  - ANEURYSM [None]
  - APHASIA [None]
  - BRAIN STEM SYNDROME [None]
  - COGNITIVE DISORDER [None]
  - GENERALISED OEDEMA [None]
  - LYMPHOEDEMA [None]
  - MUSCULOSKELETAL STIFFNESS [None]
  - OEDEMA PERIPHERAL [None]
  - THINKING ABNORMAL [None]
